FAERS Safety Report 14168266 (Version 5)
Quarter: 2021Q2

REPORT INFORMATION
  Report Type: Spontaneous
  Country: US (occurrence: US)
  Receive Date: 20171107
  Receipt Date: 20210531
  Transmission Date: 20210716
  Serious: Yes (Other)
  Sender: FDA-Public Use
  Company Number: US-SA-2017SA108017

PATIENT
  Age: 72 Year
  Sex: Male

DRUGS (2)
  1. TOUJEO [Suspect]
     Active Substance: INSULIN GLARGINE
     Indication: TYPE 2 DIABETES MELLITUS
     Dosage: 80 IU,HS
     Route: 051
     Dates: start: 2016
  2. TOUJEO [Suspect]
     Active Substance: INSULIN GLARGINE
     Dosage: 60?80 IU BASED ON BLOOD SUGARS

REACTIONS (4)
  - Neovascular age-related macular degeneration [Unknown]
  - Product storage error [Unknown]
  - Intentional product misuse [Unknown]
  - Blood glucose increased [Unknown]
